FAERS Safety Report 23959625 (Version 1)
Quarter: 2024Q2

REPORT INFORMATION
  Report Type: Spontaneous
  Country: US (occurrence: US)
  Receive Date: 20240611
  Receipt Date: 20240611
  Transmission Date: 20240716
  Serious: No
  Sender: FDA-Public Use
  Company Number: US-AMGEN-USASP2024110988

PATIENT
  Age: 52 Year
  Sex: Female

DRUGS (1)
  1. OTEZLA [Suspect]
     Active Substance: APREMILAST
     Indication: Psoriasis
     Dosage: 30 MILLIGRAM, BID
     Route: 048
     Dates: start: 2024, end: 2024

REACTIONS (6)
  - Cellulitis [Unknown]
  - Diarrhoea [Unknown]
  - Nausea [Unknown]
  - Eye infection [Unknown]
  - Fungal infection [Unknown]
  - Wound [Unknown]

NARRATIVE: CASE EVENT DATE: 20240101
